FAERS Safety Report 19352776 (Version 1)
Quarter: 2021Q2

REPORT INFORMATION
  Report Type: Spontaneous
  Country: US (occurrence: US)
  Receive Date: 20210601
  Receipt Date: 20210601
  Transmission Date: 20210717
  Serious: Yes (Life-Threatening, Other)
  Sender: FDA-Public Use
  Company Number: US-OTSUKA-2021_018135

PATIENT
  Age: 1 Year
  Sex: Male

DRUGS (8)
  1. BUSULFAN. [Suspect]
     Active Substance: BUSULFAN
     Dosage: 15.5 MG, QD (10:30 AM)
     Route: 065
     Dates: start: 20210203
  2. BUSULFAN. [Suspect]
     Active Substance: BUSULFAN
     Indication: BONE MARROW CONDITIONING REGIMEN
     Dosage: 15.5 MG, QD (10:50 AM)
     Route: 065
     Dates: start: 20210202
  3. BUSULFAN. [Suspect]
     Active Substance: BUSULFAN
     Dosage: 15.5 MG, QD (10:15 PM)
     Route: 065
     Dates: start: 20210202
  4. BUSULFAN. [Suspect]
     Active Substance: BUSULFAN
     Dosage: 12 MG, QD (10:55 PM)
     Route: 065
     Dates: start: 20210204
  5. BUSULFAN. [Suspect]
     Active Substance: BUSULFAN
     Dosage: 12 MG, QD (10:35 AM)
     Route: 065
     Dates: start: 20210205
  6. BUSULFAN. [Suspect]
     Active Substance: BUSULFAN
     Dosage: 18 MG, QD (10:24 AM)
     Route: 065
     Dates: start: 20210204
  7. BUSULFAN. [Suspect]
     Active Substance: BUSULFAN
     Dosage: 15 MG, QD (10:15 PM)
     Route: 065
     Dates: start: 20210205
  8. BUSULFAN. [Suspect]
     Active Substance: BUSULFAN
     Dosage: 18 MG, QD (10:20 PM)
     Route: 065
     Dates: start: 20210203

REACTIONS (5)
  - Pulmonary veno-occlusive disease [Unknown]
  - Venoocclusive liver disease [Recovered/Resolved]
  - Pulmonary hypertension [Unknown]
  - Thrombotic microangiopathy [Unknown]
  - Platelet count decreased [Unknown]

NARRATIVE: CASE EVENT DATE: 202103
